FAERS Safety Report 9973610 (Version 1)
Quarter: 2014Q1

REPORT INFORMATION
  Report Type: Spontaneous
  Country: US (occurrence: None)
  Receive Date: 20140218
  Receipt Date: 20140218
  Transmission Date: 20141002
  Serious: Yes (Other)
  Sender: FDA-Public Use
  Company Number: OMPQ-PR-1309S-1167

PATIENT
  Age: 60 Year
  Sex: Male

DRUGS (2)
  1. OMNIPAQUE [Suspect]
     Indication: PRODUCT USED FOR UNKNOWN INDICATION
     Dosage: 100 ML, SINGLE DOSE, UNKNOWN
     Dates: start: 20130805, end: 20130805
  2. OMNIPAQUE [Suspect]
     Indication: DIAGNOSTIC PROCEDURE
     Dosage: 100 ML, SINGLE DOSE, UNKNOWN
     Dates: start: 20130805, end: 20130805

REACTIONS (2)
  - Pruritus [None]
  - Urticaria [None]
